FAERS Safety Report 9239555 (Version 1)
Quarter: 2013Q2

REPORT INFORMATION
  Report Type: Spontaneous
  Country: US (occurrence: US)
  Receive Date: 20130418
  Receipt Date: 20130418
  Transmission Date: 20140414
  Serious: No
  Sender: FDA-Public Use
  Company Number: US-SANOFI-AVENTIS-2012SA085433

PATIENT
  Sex: Female

DRUGS (2)
  1. ENOXAPARIN SODIUM - WINTHROP [Suspect]
     Route: 065
  2. OXYCONTIN [Suspect]
     Route: 065

REACTIONS (1)
  - Hot flush [Not Recovered/Not Resolved]
